FAERS Safety Report 6189791-X (Version None)
Quarter: 2009Q2

REPORT INFORMATION
  Report Type: 
  Country: None (occurrence: None)
  Receive Date: 20090512
  Receipt Date: 20090512
  Transmission Date: 20091009
  Serious: No
  Sender: FDA-Public Use
  Company Number: None

PATIENT
  Age: 44 Year
  Sex: Female
  Weight: 69.4003 kg

DRUGS (1)
  1. LEVAQUIN [Suspect]
     Indication: URINARY TRACT INFECTION
     Dosage: 1 TAB DAILY
     Dates: start: 20090505, end: 20090508

REACTIONS (4)
  - GAIT DISTURBANCE [None]
  - NO THERAPEUTIC RESPONSE [None]
  - TENDON PAIN [None]
  - URINARY TRACT INFECTION [None]
